FAERS Safety Report 9261247 (Version 1)
Quarter: 2013Q2

REPORT INFORMATION
  Report Type: Spontaneous
  Country: US (occurrence: US)
  Receive Date: 20130429
  Receipt Date: 20130429
  Transmission Date: 20140414
  Serious: Yes (Death, Hospitalization)
  Sender: FDA-Public Use
  Company Number: US-GLAXOSMITHKLINE-A0780801A

PATIENT
  Age: 62 Year
  Sex: Female
  Weight: 95.5 kg

DRUGS (1)
  1. AVANDIA [Suspect]
     Indication: DIABETES MELLITUS
     Dosage: 8MG AS DIRECTED
     Route: 048
     Dates: start: 2000, end: 200806

REACTIONS (3)
  - Endocarditis bacterial [Fatal]
  - Cardiac failure congestive [Unknown]
  - Embolic stroke [Unknown]
